FAERS Safety Report 8969955 (Version 2)
Quarter: 2013Q1

REPORT INFORMATION
  Report Type: Spontaneous
  Country: US (occurrence: US)
  Receive Date: 20121217
  Receipt Date: 20130123
  Transmission Date: 20140127
  Serious: No
  Sender: FDA-Public Use
  Company Number: US-ASTRAZENECA-2012SE90129

PATIENT
  Age: 83 Year
  Sex: Female
  Weight: 88.9 kg

DRUGS (5)
  1. SYMBICORT PMDI [Suspect]
     Indication: ASTHMA
     Dosage: TWO PUFFS, BID
     Route: 055
     Dates: start: 2008
  2. SYMBICORT PMDI [Suspect]
     Indication: ASTHMA
     Dosage: 320 MCG, 2 PUFFS, IN THE MORNING
     Route: 055
     Dates: start: 2008
  3. AMLODIPINE [Concomitant]
     Indication: HYPERTENSION
     Route: 048
  4. LEVOXYL [Concomitant]
     Indication: THYROID DISORDER
  5. CLARITIN [Concomitant]
     Indication: HYPERSENSITIVITY
     Dosage: PRN

REACTIONS (5)
  - Tongue disorder [Not Recovered/Not Resolved]
  - Eyelid exfoliation [Unknown]
  - Swollen tongue [Unknown]
  - Oral candidiasis [Recovered/Resolved]
  - Intentional drug misuse [Not Recovered/Not Resolved]
